FAERS Safety Report 21458350 (Version 1)
Quarter: 2022Q4

REPORT INFORMATION
  Report Type: Spontaneous
  Country: US (occurrence: US)
  Receive Date: 20221014
  Receipt Date: 20221014
  Transmission Date: 20230113
  Serious: Yes (Hospitalization, Other)
  Sender: FDA-Public Use
  Company Number: US-PFIZER INC-202201221788

PATIENT
  Age: 69 Year
  Sex: Female
  Weight: 79.38 kg

DRUGS (2)
  1. IBRANCE [Suspect]
     Active Substance: PALBOCICLIB
     Indication: Breast cancer metastatic
     Dosage: 125 MG, CYCLIC (FOR 21 DAYS AND 7 DAYS OFF)
     Dates: start: 2019
  2. LETROZOLE [Concomitant]
     Active Substance: LETROZOLE
     Dosage: 2.5 MG, DAILY (2.5 MG, (EVERY MORNING ))

REACTIONS (4)
  - Brain operation [Unknown]
  - Brain contusion [Unknown]
  - Gait disturbance [Unknown]
  - Neoplasm progression [Unknown]

NARRATIVE: CASE EVENT DATE: 20220928
